FAERS Safety Report 23913116 (Version 1)
Quarter: 2024Q2

REPORT INFORMATION
  Report Type: Spontaneous
  Country: JP (occurrence: JP)
  Receive Date: 20240529
  Receipt Date: 20240529
  Transmission Date: 20240716
  Serious: Yes (Other)
  Sender: FDA-Public Use
  Company Number: JP-ABBVIE-5777810

PATIENT
  Age: 43 Year
  Sex: Male

DRUGS (2)
  1. VENCLEXTA [Suspect]
     Active Substance: VENETOCLAX
     Indication: Acute myeloid leukaemia
     Dosage: MAXIMUM: 400 MG/DAY?DURATION: 7DAYS/CYCLE ? 4 CYCLES?STRENGTH: 50 MG
     Route: 048
  2. AZACITIDINE [Concomitant]
     Active Substance: AZACITIDINE
     Indication: Acute myeloid leukaemia
     Dosage: 75 MG/M2?DURATION TEXT: 7DAYS/CYCLE ?- 4 CYCLES
     Route: 065

REACTIONS (1)
  - Cord blood transplant therapy [Unknown]
